FAERS Safety Report 6554084-5 (Version None)
Quarter: 2010Q1

REPORT INFORMATION
  Report Type: 
  Country: None (occurrence: None)
  Receive Date: 20100127
  Receipt Date: 20100115
  Transmission Date: 20100710
  Serious: Yes (Hospitalization, Other)
  Sender: FDA-Public Use
  Company Number: HR-ELI_LILLY_AND_COMPANY-HR201001003585

PATIENT
  Sex: Male

DRUGS (5)
  1. ZYPREXA [Suspect]
     Indication: DEMENTIA
     Dosage: 5 MG, EACH EVENING
     Route: 048
     Dates: start: 20090821, end: 20091124
  2. ZYPREXA [Suspect]
     Dosage: 10 MG, EACH EVENING
     Route: 048
     Dates: start: 20091125, end: 20091207
  3. PRAZINE [Concomitant]
     Indication: ACUTE PSYCHOSIS
     Dosage: 25 MG, EACH EVENING
     Route: 048
     Dates: start: 20090820, end: 20091124
  4. PRAZINE [Concomitant]
     Dosage: 50 MG, EACH EVENING
     Route: 048
     Dates: start: 20091125, end: 20091206
  5. MADOPAR [Concomitant]
     Indication: PARKINSONISM
     Dosage: 125 MG, UNKNOWN
     Route: 048
     Dates: start: 20070821

REACTIONS (7)
  - ACUTE PSYCHOSIS [None]
  - DELIRIUM [None]
  - HYPOVENTILATION [None]
  - LOSS OF CONSCIOUSNESS [None]
  - OFF LABEL USE [None]
  - STUPOR [None]
  - TACHYPNOEA [None]
